FAERS Safety Report 5597525-2 (Version None)
Quarter: 2008Q1

REPORT INFORMATION
  Report Type: 
  Country: None (occurrence: None)
  Receive Date: 20080121
  Receipt Date: 20080110
  Transmission Date: 20080703
  Serious: Yes (Death, Hospitalization)
  Sender: FDA-Public Use
  Company Number: FR-WYE-H02112908

PATIENT
  Sex: Female

DRUGS (2)
  1. INIPOMP [Suspect]
     Indication: DYSPEPSIA
     Route: 048
     Dates: start: 20070717, end: 20070827
  2. INIPOMP [Suspect]
     Route: 048
     Dates: start: 20070828, end: 20070911

REACTIONS (2)
  - PANCYTOPENIA [None]
  - WEIGHT DECREASED [None]
